FAERS Safety Report 17910290 (Version 1)
Quarter: 2020Q2

REPORT INFORMATION
  Report Type: Report from Study
  Country: US (occurrence: US)
  Receive Date: 20200617
  Receipt Date: 20200617
  Transmission Date: 20200714
  Serious: Yes (Other)
  Sender: FDA-Public Use
  Company Number: US-ROCHE-2619145

PATIENT
  Age: 65 Year
  Sex: Female
  Weight: 145.28 kg

DRUGS (11)
  1. METFORMIN [Concomitant]
     Active Substance: METFORMIN HYDROCHLORIDE
     Indication: TYPE 2 DIABETES MELLITUS
     Route: 065
  2. ELIQUIS [Concomitant]
     Active Substance: APIXABAN
     Indication: THROMBOSIS
     Route: 065
  3. ACIPHEX [Concomitant]
     Active Substance: RABEPRAZOLE SODIUM
     Indication: GASTROOESOPHAGEAL REFLUX DISEASE
     Route: 065
  4. GABAPENTIN. [Concomitant]
     Active Substance: GABAPENTIN
     Indication: PAIN
     Route: 065
  5. LANTUS [Concomitant]
     Active Substance: INSULIN GLARGINE
     Indication: TYPE 2 DIABETES MELLITUS
     Dosage: 30 UNITS/DAY
     Route: 065
  6. ATORVASTATIN [Concomitant]
     Active Substance: ATORVASTATIN
     Indication: BLOOD CHOLESTEROL INCREASED
     Route: 065
  7. LEVOTHYROXINE. [Concomitant]
     Active Substance: LEVOTHYROXINE
     Route: 065
     Dates: start: 1998
  8. DULOXETINE. [Concomitant]
     Active Substance: DULOXETINE
     Indication: PAIN
     Route: 065
  9. CARTIA XT [Concomitant]
     Active Substance: DILTIAZEM HYDROCHLORIDE
     Indication: RESTRICTIVE CARDIOMYOPATHY
     Route: 065
  10. OCREVUS [Suspect]
     Active Substance: OCRELIZUMAB
     Indication: PROGRESSIVE MULTIPLE SCLEROSIS
     Dosage: DATE OF PREVIOUS INFUSION: 26/NOV/2018?DATE OF NEXT INFUSION: 21/MAY/2019
     Route: 042
     Dates: start: 20170101
  11. METOPROLOL. [Concomitant]
     Active Substance: METOPROLOL
     Indication: HYPERTENSION
     Route: 065

REACTIONS (14)
  - Fall [Unknown]
  - Muscular weakness [Recovered/Resolved]
  - Fatigue [Recovered/Resolved]
  - Infection [Recovered/Resolved]
  - Hypertension [Unknown]
  - Pain in jaw [Recovered/Resolved]
  - Ear discomfort [Recovered/Resolved]
  - Ankylosing spondylitis [Not Recovered/Not Resolved]
  - Toothache [Recovered/Resolved]
  - Product dose omission [Unknown]
  - Thrombosis [Recovered/Resolved]
  - Tooth fracture [Recovered/Resolved]
  - Herpes zoster [Recovered/Resolved]
  - Swelling face [Recovered/Resolved]

NARRATIVE: CASE EVENT DATE: 201901
